FAERS Safety Report 7391485-X (Version None)
Quarter: 2011Q2

REPORT INFORMATION
  Report Type: 
  Country: None (occurrence: None)
  Receive Date: 20110404
  Receipt Date: 20101026
  Transmission Date: 20111010
  Serious: Yes (Other)
  Sender: FDA-Public Use
  Company Number: US-BAYER-201024708NA

PATIENT
  Sex: Female
  Weight: 52.154 kg

DRUGS (2)
  1. OCELLA [Suspect]
     Route: 048
  2. YASMIN [Suspect]
     Dosage: UNK
     Route: 048
     Dates: start: 20050101, end: 20070101

REACTIONS (4)
  - BLINDNESS [None]
  - ARTERITIS [None]
  - RETINAL VASCULAR THROMBOSIS [None]
  - RETINAL ARTERY OCCLUSION [None]
